FAERS Safety Report 5041211-4 (Version None)
Quarter: 2006Q3

REPORT INFORMATION
  Report Type: 
  Country: None (occurrence: None)
  Receive Date: 20060703
  Receipt Date: 20060414
  Transmission Date: 20061208
  Serious: Yes (Other)
  Sender: FDA-Public Use
  Company Number: NL-GLAXOSMITHKLINE-B0421238A

PATIENT
  Age: 69 Year
  Sex: Male
  Weight: 91 kg

DRUGS (3)
  1. FLUTICASONE PROPIONATE [Suspect]
     Indication: BRONCHITIS
     Dosage: 1U PER DAY
     Route: 055
     Dates: start: 20011113
  2. FLUTICASONE PROPIONATE [Suspect]
     Dosage: 250MCG TWICE PER DAY
     Route: 055
     Dates: start: 20020219
  3. FORADIL [Concomitant]
     Dosage: 1TAB TWICE PER DAY
     Route: 065
     Dates: start: 20020114

REACTIONS (1)
  - VISUAL ACUITY REDUCED [None]
